FAERS Safety Report 6998974-8 (Version None)
Quarter: 2010Q3

REPORT INFORMATION
  Report Type: 
  Country: None (occurrence: None)
  Receive Date: 20100920
  Receipt Date: 20100311
  Transmission Date: 20110219
  Serious: No
  Sender: FDA-Public Use
  Company Number: US-ASTRAZENECA-2010SE10632

PATIENT
  Age: 25 Year
  Sex: Female

DRUGS (1)
  1. SEROQUEL XR [Suspect]
     Indication: INSOMNIA
     Dosage: AT NIGHT
     Route: 048
     Dates: start: 20100120

REACTIONS (3)
  - BLOOD PRESSURE DIASTOLIC INCREASED [None]
  - TACHYCARDIA [None]
  - WEIGHT INCREASED [None]
